FAERS Safety Report 5457859-9 (Version None)
Quarter: 2007Q3

REPORT INFORMATION
  Report Type: 
  Country: None (occurrence: None)
  Receive Date: 20070917
  Receipt Date: 20070910
  Transmission Date: 20080115
  Serious: Yes (Hospitalization)
  Sender: FDA-Public Use
  Company Number: 2007SP018156

PATIENT
  Age: 74 Year
  Sex: Male
  Weight: 86.2 kg

DRUGS (10)
  1. TEMODAR [Suspect]
     Indication: GLIOBLASTOMA MULTIFORME
     Dosage: ; PO, ;PO
     Route: 048
     Dates: start: 20070808, end: 20070827
  2. TEMODAR [Suspect]
     Indication: GLIOBLASTOMA MULTIFORME
     Dosage: ; PO, ;PO
     Route: 048
     Dates: start: 20070530
  3. DILANTIN [Concomitant]
  4. FLOMAX [Concomitant]
  5. COLACE [Concomitant]
  6. VICODIN [Concomitant]
  7. LEXAPRO [Concomitant]
  8. SINGULAIR [Concomitant]
  9. DOXYCYCLINE [Concomitant]
  10. FUROSEMIDE [Concomitant]

REACTIONS (7)
  - ANOREXIA [None]
  - BALANCE DISORDER [None]
  - DECREASED APPETITE [None]
  - DEHYDRATION [None]
  - FATIGUE [None]
  - HEADACHE [None]
  - MALAISE [None]
